FAERS Safety Report 25778492 (Version 1)
Quarter: 2025Q3

REPORT INFORMATION
  Report Type: Spontaneous
  Country: US (occurrence: None)
  Receive Date: 20250908
  Receipt Date: 20250908
  Transmission Date: 20251021
  Serious: Yes (Death)
  Sender: FDA-CTU
  Company Number: None

PATIENT
  Age: 39 Year
  Sex: Male
  Weight: 140.7 kg

DRUGS (2)
  1. BUPROPION [Suspect]
     Active Substance: BUPROPION
     Indication: Anxiety
  2. BUPROPION [Concomitant]
     Active Substance: BUPROPION
     Dates: start: 20240729

REACTIONS (8)
  - Cardiac arrest [None]
  - Alcoholic seizure [None]
  - Brain injury [None]
  - Shock [None]
  - Respiratory failure [None]
  - Hypotension [None]
  - Hypomagnesaemia [None]
  - Multiple organ dysfunction syndrome [None]

NARRATIVE: CASE EVENT DATE: 20250825
